FAERS Safety Report 8869007 (Version 6)
Quarter: 2013Q2

REPORT INFORMATION
  Report Type: Spontaneous
  Country: US (occurrence: US)
  Receive Date: 20121027
  Receipt Date: 20130516
  Transmission Date: 20140414
  Serious: Yes (Hospitalization, Other)
  Sender: FDA-Public Use
  Company Number: US-009507513-1202USA00839

PATIENT
  Sex: Female
  Weight: 57.14 kg

DRUGS (9)
  1. FOSAMAX [Suspect]
     Indication: OSTEOPENIA
     Dosage: 70 MG, QW
     Route: 048
     Dates: start: 200605, end: 200705
  2. FOSAMAX [Suspect]
     Indication: OSTEOPOROSIS
  3. FOSAMAX PLUS D [Suspect]
     Indication: OSTEOPENIA
     Dosage: 70 MG, QW
     Route: 048
     Dates: start: 200705, end: 200904
  4. FOSAMAX PLUS D [Suspect]
     Indication: OSTEOPOROSIS
  5. NEXIUM [Concomitant]
     Indication: GASTROOESOPHAGEAL REFLUX DISEASE
     Dosage: UNK
     Dates: start: 1992
  6. VITAMINS (UNSPECIFIED) [Concomitant]
     Dosage: 1 DF, QD
     Dates: start: 1982
  7. ASCORBIC ACID [Concomitant]
     Dosage: 1 DF, QD
     Dates: start: 1982
  8. VITAMIN D (UNSPECIFIED) [Concomitant]
     Dosage: 800 IU, UNK
     Dates: start: 1982
  9. CHONDROITIN SULFATE SODIUM (+) GLUCOSAMINE SULFATE [Concomitant]
     Dosage: 1500MG AND 90MG
     Dates: start: 1982, end: 2012

REACTIONS (29)
  - Intramedullary rod insertion [Unknown]
  - Arthrodesis [Unknown]
  - Oophorectomy [Unknown]
  - Spinal fusion surgery [Unknown]
  - Shoulder arthroplasty [Unknown]
  - Carpal tunnel decompression [Unknown]
  - Fracture nonunion [Unknown]
  - Femur fracture [Unknown]
  - Carpal tunnel syndrome [Unknown]
  - Tooth extraction [Unknown]
  - Dental implantation [Unknown]
  - Osteoarthritis [Unknown]
  - Intervertebral disc degeneration [Unknown]
  - Medical device complication [Unknown]
  - Device component issue [Unknown]
  - Blood caffeine increased [Unknown]
  - Spinal pain [Unknown]
  - Rotator cuff syndrome [Unknown]
  - Carpal tunnel syndrome [Unknown]
  - Neuropathy peripheral [Unknown]
  - Radiculitis cervical [Unknown]
  - Ligament sprain [Unknown]
  - Neoplasm [Unknown]
  - Insomnia [Unknown]
  - Osteoarthritis [Unknown]
  - Meniscus injury [Unknown]
  - Asthenia [Unknown]
  - Neck pain [Not Recovered/Not Resolved]
  - Drug ineffective [Unknown]
